FAERS Safety Report 17699148 (Version 1)
Quarter: 2020Q2

REPORT INFORMATION
  Report Type: Report from Study
  Country: IN (occurrence: IN)
  Receive Date: 20200423
  Receipt Date: 20200423
  Transmission Date: 20200714
  Serious: Yes (Death, Life-Threatening)
  Sender: FDA-Public Use
  Company Number: IN-ASTRAZENECA-2020SE53372

PATIENT
  Age: 59 Year
  Sex: Male

DRUGS (8)
  1. ASPIRIN. [Concomitant]
     Active Substance: ASPIRIN
     Indication: CARDIAC DISORDER
     Dosage: UNKNOWN DOSE, ONCE A DAY
     Route: 048
     Dates: end: 20200216
  2. IVABRAD [Concomitant]
     Indication: CARDIAC DISORDER
     Dosage: DOSE UNKNOWN, TWO TIMES A DAY
     Route: 048
     Dates: end: 20200216
  3. BRILINTA [Suspect]
     Active Substance: TICAGRELOR
     Indication: CARDIAC DISORDER
     Route: 048
     Dates: start: 20191105
  4. AFOGLIP [Concomitant]
     Indication: DIABETES MELLITUS
     Dosage: UNKNOWN DOSE, ONCE A DAY
     Route: 048
     Dates: end: 20200216
  5. ISORDIL S/L [Concomitant]
     Indication: CARDIAC DISORDER
     Dosage: UNKNOWN DOSE, AS REQUIRED
     Route: 048
     Dates: end: 20200216
  6. RAMIPRESS [Concomitant]
     Indication: BLOOD PRESSURE ABNORMAL
     Dosage: UNKNOWN DOSE, ONCE A DAY
     Route: 048
     Dates: end: 20200216
  7. ANCIDOM - DSR [Concomitant]
     Indication: ACIDOSIS
     Dosage: UNKNOWN DOSE, ONCE A DAY
     Route: 048
     Dates: end: 20200216
  8. DYTOR [Concomitant]
     Active Substance: TORSEMIDE
     Indication: BLOOD PRESSURE ABNORMAL
     Dosage: UNKNOWN DOSE, ONCE A DAY
     Route: 048
     Dates: end: 20200216

REACTIONS (2)
  - Cough [Unknown]
  - Death [Fatal]

NARRATIVE: CASE EVENT DATE: 20200216
